FAERS Safety Report 6129010-3 (Version None)
Quarter: 2009Q1

REPORT INFORMATION
  Report Type: 
  Country: None (occurrence: None)
  Receive Date: 20090324
  Receipt Date: 20090320
  Transmission Date: 20090719
  Serious: Yes (Death, Other)
  Sender: FDA-Public Use
  Company Number: PHEH2009US02573

PATIENT
  Age: 78 Year
  Sex: Female

DRUGS (16)
  1. ZOMETA [Suspect]
     Indication: BREAST CANCER METASTATIC
     Dosage: 4 MG, QMO
     Route: 042
     Dates: end: 20060309
  2. ZOMETA [Suspect]
     Indication: METASTASES TO BONE
  3. CLONIDINE [Concomitant]
     Indication: HYPERTENSION
     Dosage: 0.2 MG, QHS
  4. MULTIVITAMIN ^LAPPE^ [Concomitant]
     Dosage: ONE DAILY
  5. ASCORBIC ACID [Concomitant]
  6. VITAMIN E [Concomitant]
  7. GARLIC [Concomitant]
  8. TAMOXIFEN [Concomitant]
     Indication: BREAST CANCER
     Dosage: UNK
     Dates: start: 20061107
  9. SENNA [Concomitant]
     Indication: BOWEL MOVEMENT IRREGULARITY
     Dosage: ONE DAILY
     Dates: start: 20060223
  10. TUMS [Concomitant]
     Dosage: UNK
     Dates: end: 20060318
  11. ASPIRIN [Concomitant]
     Indication: BREAST CANCER
  12. ASPIRIN [Concomitant]
     Indication: THROMBOSIS PROPHYLAXIS
  13. MOTRIN [Concomitant]
     Indication: PAIN
     Dosage: 600 MG, PRN
     Dates: start: 20050713
  14. FASLODEX [Concomitant]
     Indication: BREAST CANCER
     Dosage: 250 MG, QMO
     Route: 030
     Dates: start: 20060309, end: 20060322
  15. TYLENOL ^JOHNSON + JOHNSON^ [Concomitant]
     Indication: PAIN
  16. ARIMIDEX [Concomitant]
     Dosage: UNK
     Dates: start: 20040101, end: 20050101

REACTIONS (13)
  - BIOPSY [None]
  - BONE DISORDER [None]
  - BREAST CANCER METASTATIC [None]
  - DEBRIDEMENT [None]
  - ERYTHEMA [None]
  - GINGIVAL HYPERPLASIA [None]
  - GINGIVAL INFECTION [None]
  - INFLAMMATION [None]
  - OSTEOMYELITIS [None]
  - OSTEONECROSIS [None]
  - PAIN [None]
  - PAIN IN JAW [None]
  - SOFT TISSUE INFECTION [None]
